FAERS Safety Report 16540937 (Version 1)
Quarter: 2019Q3

REPORT INFORMATION
  Report Type: Report from Study
  Country: None (occurrence: US)
  Receive Date: 20190708
  Receipt Date: 20190708
  Transmission Date: 20191004
  Serious: Yes (Other)
  Sender: FDA-Public Use
  Company Number: US-ABBVIE-19K-163-2842026-00

PATIENT
  Sex: Female

DRUGS (5)
  1. IBUPROFEN. [Concomitant]
     Active Substance: IBUPROFEN
     Indication: PRODUCT USED FOR UNKNOWN INDICATION
  2. PROGESTERONE. [Concomitant]
     Active Substance: PROGESTERONE
     Indication: PRODUCT USED FOR UNKNOWN INDICATION
  3. LUPRON [Suspect]
     Active Substance: LEUPROLIDE ACETATE
     Dosage: 6 MONTH COURSE
     Route: 030
     Dates: start: 2005
  4. LUPRON [Suspect]
     Active Substance: LEUPROLIDE ACETATE
     Dosage: 6 MONTH COURSE
     Route: 030
     Dates: start: 2011
  5. LUPRON [Suspect]
     Active Substance: LEUPROLIDE ACETATE
     Indication: PRODUCT USED FOR UNKNOWN INDICATION
     Dosage: 6 MONTH COURSE
     Route: 030
     Dates: start: 2003

REACTIONS (16)
  - Ovarian cyst [Not Recovered/Not Resolved]
  - Alopecia [Recovered/Resolved]
  - Medical device implantation [Recovering/Resolving]
  - Hot flush [Recovered/Resolved]
  - Migraine [Not Recovered/Not Resolved]
  - Urinary tract infection [Recovered/Resolved]
  - Endometriosis [Recovering/Resolving]
  - Dyspareunia [Recovering/Resolving]
  - Mood swings [Recovered/Resolved]
  - Anxiety [Not Recovered/Not Resolved]
  - Pain [Not Recovered/Not Resolved]
  - Adhesion [Recovering/Resolving]
  - Bone loss [Not Recovered/Not Resolved]
  - Breast enlargement [Recovered/Resolved]
  - Drug ineffective [Recovered/Resolved]
  - Raynaud^s phenomenon [Not Recovered/Not Resolved]
